FAERS Safety Report 11665755 (Version 1)
Quarter: 2015Q4

REPORT INFORMATION
  Report Type: Report from Study
  Country: US (occurrence: US)
  Receive Date: 20151027
  Receipt Date: 20151027
  Transmission Date: 20160304
  Serious: Yes (Hospitalization)
  Sender: FDA-Public Use
  Company Number: US-AMGEN-USASL2015110570

PATIENT
  Age: 63 Year
  Sex: Female

DRUGS (1)
  1. ENBREL [Suspect]
     Active Substance: ETANERCEPT
     Indication: RHEUMATOID ARTHRITIS
     Dosage: 50 MG, QWK
     Route: 065
     Dates: start: 2004

REACTIONS (5)
  - Dacryocanaliculitis [Not Recovered/Not Resolved]
  - Wound secretion [Unknown]
  - Streptococcal infection [Not Recovered/Not Resolved]
  - Fatigue [Unknown]
  - Fear [Unknown]

NARRATIVE: CASE EVENT DATE: 2015
